FAERS Safety Report 6570718-3 (Version None)
Quarter: 2010Q1

REPORT INFORMATION
  Report Type: 
  Country: None (occurrence: None)
  Receive Date: 20100204
  Receipt Date: 20100201
  Transmission Date: 20100710
  Serious: Yes (Hospitalization)
  Sender: FDA-Public Use
  Company Number: B0620213A

PATIENT
  Sex: Female
  Weight: 54 kg

DRUGS (11)
  1. ARIXTRA [Suspect]
     Indication: THROMBOSIS PROPHYLAXIS
     Dosage: 2.5MG PER DAY
     Route: 058
     Dates: start: 20091204, end: 20091207
  2. ORGARAN [Suspect]
     Indication: HEPARIN-INDUCED THROMBOCYTOPENIA
     Dosage: 750IU THREE TIMES PER DAY
     Route: 058
     Dates: start: 20091202, end: 20091204
  3. CORTANCYL [Concomitant]
     Route: 065
  4. ROCEPHIN [Concomitant]
     Indication: PNEUMOCOCCAL INFECTION
     Route: 065
     Dates: start: 20091127, end: 20091207
  5. TAVANIC [Concomitant]
     Indication: PNEUMOCOCCAL INFECTION
     Route: 065
     Dates: start: 20091127, end: 20091207
  6. LOVENOX [Concomitant]
     Indication: THROMBOSIS PROPHYLAXIS
     Route: 065
     Dates: start: 20091127, end: 20091130
  7. TAHOR [Concomitant]
     Indication: DRUG USE FOR UNKNOWN INDICATION
     Route: 065
     Dates: end: 20091207
  8. LASILIX [Concomitant]
     Indication: DRUG USE FOR UNKNOWN INDICATION
     Route: 065
     Dates: end: 20091207
  9. CARDENSIEL [Concomitant]
     Indication: DRUG USE FOR UNKNOWN INDICATION
     Route: 065
     Dates: end: 20091207
  10. TRIATEC [Concomitant]
     Indication: DRUG USE FOR UNKNOWN INDICATION
     Route: 065
     Dates: end: 20091207
  11. AMLOR [Concomitant]
     Indication: DRUG USE FOR UNKNOWN INDICATION
     Route: 065
     Dates: end: 20091207

REACTIONS (25)
  - AGITATION [None]
  - ANAEMIA [None]
  - ANURIA [None]
  - APNOEIC ATTACK [None]
  - BLOOD CULTURE POSITIVE [None]
  - CONFUSIONAL STATE [None]
  - DISORIENTATION [None]
  - DUODENITIS [None]
  - GASTRITIS [None]
  - INCOHERENT [None]
  - INTRA-ABDOMINAL HAEMATOMA [None]
  - LIVEDO RETICULARIS [None]
  - LUNG DISORDER [None]
  - MELAENA [None]
  - MIOSIS [None]
  - OEDEMA PERIPHERAL [None]
  - OESOPHAGITIS [None]
  - PALLOR [None]
  - PERIPHERAL COLDNESS [None]
  - PNEUMOCOCCAL INFECTION [None]
  - PYREXIA [None]
  - RENAL FAILURE [None]
  - SEPSIS [None]
  - SINUSITIS [None]
  - TACHYCARDIA [None]
